FAERS Safety Report 4644467-2 (Version None)
Quarter: 2005Q2

REPORT INFORMATION
  Report Type: 
  Country: None (occurrence: None)
  Receive Date: 20050331
  Receipt Date: 20050218
  Transmission Date: 20051028
  Serious: No
  Sender: FDA-Public Use
  Company Number: 05P-163-0291281-00

PATIENT
  Age: 59 Year
  Sex: Female
  Weight: 77.5651 kg

DRUGS (8)
  1. HUMIRA [Suspect]
     Indication: RHEUMATOID ARTHRITIS
     Dosage: 40 MG, 1 IN 2 WK, SUBCUTANEOUS
     Route: 058
     Dates: start: 20041101
  2. HYDROXYCHLOROQUINE PHOSPHATE [Concomitant]
  3. PREDNISONE [Concomitant]
  4. GLIBOMET [Concomitant]
  5. OMEPRAZOLE [Concomitant]
  6. HYDROCODONE BITARTRATE [Concomitant]
  7. GABAPENTIN [Concomitant]
  8. LISINOPRIL [Concomitant]

REACTIONS (1)
  - PROCEDURAL COMPLICATION [None]
